FAERS Safety Report 9772845 (Version 1)
Quarter: 2013Q4

REPORT INFORMATION
  Report Type: Spontaneous
  Country: DE (occurrence: DE)
  Receive Date: 20131219
  Receipt Date: 20131219
  Transmission Date: 20140711
  Serious: Yes (Other)
  Sender: FDA-Public Use
  Company Number: DE-PFIZER INC-2013362243

PATIENT
  Age: 61 Year
  Sex: Female

DRUGS (3)
  1. DELIX [Suspect]
     Indication: PARADOXICAL DRUG REACTION
     Dosage: 25 MG, SINGLE
     Route: 048
     Dates: start: 20131207, end: 20131207
  2. XARELTO [Concomitant]
     Dosage: 20 MG, UNK
  3. BISOPROLOL [Concomitant]
     Dosage: 7.5 MG, UNK

REACTIONS (3)
  - Blood pressure increased [Recovered/Resolved]
  - Nausea [Recovered/Resolved]
  - Vomiting [Recovered/Resolved]
